FAERS Safety Report 8508406-6 (Version None)
Quarter: 2012Q2

REPORT INFORMATION
  Report Type: 
  Country: None (occurrence: None)
  Receive Date: 20120405
  Receipt Date: 20090311
  Transmission Date: 20120825
  Serious: Yes (Other)
  Sender: FDA-Public Use
  Company Number: PHEH2009US02493

PATIENT
  Sex: Female

DRUGS (7)
  1. EXCEDRIN (CAFFEINE, PARACETAMOL) [Concomitant]
  2. MESTINON [Concomitant]
  3. PROTONIX [Concomitant]
  4. RECLAST [Suspect]
     Dosage: UNK, INFUSION
     Dates: start: 20090309
  5. IMMUNE GLOBULIN (HUMAN) [Concomitant]
  6. TOPAMAX [Concomitant]
  7. BUSPAR [Concomitant]

REACTIONS (3)
  - PYREXIA [None]
  - MALAISE [None]
  - INFLUENZA LIKE ILLNESS [None]
